FAERS Safety Report 4562266-7 (Version None)
Quarter: 2005Q1

REPORT INFORMATION
  Report Type: 
  Country: None (occurrence: None)
  Receive Date: 20050121
  Receipt Date: 20041221
  Transmission Date: 20050727
  Serious: Yes (Hospitalization, Other)
  Sender: FDA-Public Use
  Company Number: 2004117347

PATIENT
  Age: 50 Year
  Sex: Female
  Weight: 81.6475 kg

DRUGS (3)
  1. CELEBREX [Suspect]
     Indication: ARTHRITIS
     Dosage: 400 MG (200 MG, 2 IN 1 D), ORAL
     Route: 048
     Dates: start: 19980101, end: 20030101
  2. HEPARIN SODIUM [Suspect]
     Indication: PREOPERATIVE CARE
  3. PREDNISONE [Concomitant]

REACTIONS (7)
  - BRAIN DAMAGE [None]
  - CARDIAC FAILURE CONGESTIVE [None]
  - CEREBELLAR HAEMATOMA [None]
  - CEREBRAL HAEMORRHAGE [None]
  - HEART TRANSPLANT [None]
  - MARITAL PROBLEM [None]
  - MYOCARDIAL INFARCTION [None]
